FAERS Safety Report 13779361 (Version 1)
Quarter: 2017Q3

REPORT INFORMATION
  Report Type: Spontaneous
  Country: IT (occurrence: IT)
  Receive Date: 20170721
  Receipt Date: 20170721
  Transmission Date: 20171127
  Serious: Yes (Other)
  Sender: FDA-Public Use
  Company Number: IT-AUROBINDO-AUR-APL-2013-04324

PATIENT

DRUGS (2)
  1. DELORAZEPAM 0.5 MG TABLETS [Suspect]
     Active Substance: DELORAZEPAM
     Indication: DEPRESSION
     Dosage: 12 MG,TOTAL,
     Route: 048
     Dates: start: 20130426, end: 20130426
  2. SERTRALINA AUROBINDO COMPRESSE RIVESTITE CON FILM 50 MG (SERTALINE) FILM-COATED TABLET, 50MG [Suspect]
     Active Substance: SERTRALINE HYDROCHLORIDE
     Indication: DEPRESSION
     Dosage: 100 MG,TOTAL,
     Route: 048
     Dates: start: 20130426, end: 20130426

REACTIONS (3)
  - Overdose [Recovering/Resolving]
  - Personality disorder [Recovering/Resolving]
  - Suicide attempt [Recovering/Resolving]

NARRATIVE: CASE EVENT DATE: 20130426
